FAERS Safety Report 9528677 (Version 1)
Quarter: 2013Q3

REPORT INFORMATION
  Report Type: Spontaneous
  Country: US (occurrence: US)
  Receive Date: 20130917
  Receipt Date: 20130917
  Transmission Date: 20140515
  Serious: No
  Sender: FDA-Public Use
  Company Number: US-BAYER-2013-111768

PATIENT
  Age: 16 Year
  Sex: Female
  Weight: 63.04 kg

DRUGS (10)
  1. ALEVE GELCAPS [Suspect]
     Indication: VIRAL INFECTION
     Dosage: 2 DF, UNK
     Route: 048
  2. ALEVE GELCAPS [Suspect]
     Indication: NASOPHARYNGITIS
  3. ALEVE GELCAPS [Suspect]
     Indication: HEADACHE
  4. PROMETHAZINE [Concomitant]
  5. SUDAFED [Concomitant]
     Indication: HEADACHE
  6. SUDAFED [Concomitant]
     Indication: NASOPHARYNGITIS
  7. SUDAFED [Concomitant]
     Indication: VIRAL INFECTION
  8. LORATADINE [Concomitant]
     Indication: VIRAL INFECTION
  9. LORATADINE [Concomitant]
     Indication: NASOPHARYNGITIS
  10. LORATADINE [Concomitant]
     Indication: HEADACHE

REACTIONS (1)
  - Off label use [None]
